FAERS Safety Report 15373531 (Version 1)
Quarter: 2018Q3

REPORT INFORMATION
  Report Type: Spontaneous
  Country: US (occurrence: US)
  Receive Date: 20180912
  Receipt Date: 20180912
  Transmission Date: 20181010
  Serious: Yes (Other)
  Sender: FDA-Public Use
  Company Number: US-AMGEN INC.-USASP2018124680

PATIENT
  Age: 49 Year
  Sex: Female

DRUGS (1)
  1. AIMOVIG [Suspect]
     Active Substance: ERENUMAB-AOOE
     Indication: MIGRAINE PROPHYLAXIS
     Dosage: 70 MG, QMO
     Route: 065
     Dates: start: 20180819

REACTIONS (6)
  - Tinnitus [Unknown]
  - Feeling abnormal [Not Recovered/Not Resolved]
  - Disturbance in attention [Unknown]
  - Wrong technique in product usage process [Unknown]
  - Burning sensation [Unknown]
  - Injection site pain [Unknown]

NARRATIVE: CASE EVENT DATE: 2018
